FAERS Safety Report 5678662-0 (Version None)
Quarter: 2008Q1

REPORT INFORMATION
  Report Type: 
  Country: None (occurrence: None)
  Receive Date: 20080325
  Receipt Date: 20080313
  Transmission Date: 20080703
  Serious: Yes (Death, Hospitalization)
  Sender: FDA-Public Use
  Company Number: JP-AMGEN-US267665

PATIENT
  Sex: Female
  Weight: 41 kg

DRUGS (14)
  1. ENBREL [Suspect]
     Indication: RHEUMATOID ARTHRITIS
     Route: 058
     Dates: start: 20050929, end: 20071211
  2. VOLTAREN [Suspect]
     Indication: RHEUMATOID ARTHRITIS
     Dosage: 25 MG  SUP UNSPECIFIED FREQUENCY
     Route: 054
     Dates: start: 20031018, end: 20071214
  3. PREDNISOLONE [Concomitant]
     Indication: RHEUMATOID ARTHRITIS
     Route: 048
     Dates: start: 20030701, end: 20060213
  4. PREDNISOLONE [Concomitant]
     Route: 048
     Dates: start: 20060214, end: 20060529
  5. PREDNISOLONE [Concomitant]
     Route: 048
     Dates: start: 20060530, end: 20071214
  6. METHOTREXATE [Concomitant]
     Indication: RHEUMATOID ARTHRITIS
     Dosage: 2 MG UNSPECIFIED FREQUENCY
     Route: 065
     Dates: start: 20060314, end: 20060615
  7. AZULFIDINE EN-TABS [Concomitant]
     Indication: RHEUMATOID ARTHRITIS
     Route: 065
  8. ACTONEL [Concomitant]
     Indication: OSTEOPOROSIS
     Route: 048
     Dates: end: 20070801
  9. ALENDRONATE SODIUM [Concomitant]
     Indication: OSTEOPOROSIS
     Route: 048
     Dates: start: 20070801, end: 20071201
  10. METALCAPTASE [Concomitant]
     Indication: RHEUMATOID ARTHRITIS
     Route: 048
     Dates: start: 20070717, end: 20070731
  11. PEON [Concomitant]
     Indication: RHEUMATOID ARTHRITIS
     Route: 048
     Dates: start: 20070625, end: 20071214
  12. RIMATIL [Concomitant]
     Indication: RHEUMATOID ARTHRITIS
     Route: 048
     Dates: start: 20040209, end: 20060313
  13. RIMATIL [Concomitant]
     Route: 048
     Dates: start: 20060828, end: 20071211
  14. CYANOCOBALAMIN [Concomitant]
     Indication: NEURALGIA
     Route: 048
     Dates: start: 20060206, end: 20071214

REACTIONS (12)
  - ARTHRALGIA [None]
  - CARDIOVASCULAR DISORDER [None]
  - CONDITION AGGRAVATED [None]
  - DEATH [None]
  - GASTRIC ULCER [None]
  - INFECTION [None]
  - MALAISE [None]
  - PAIN [None]
  - PYREXIA [None]
  - RHEUMATOID ARTHRITIS [None]
  - SEPSIS [None]
  - SHOCK HAEMORRHAGIC [None]
